FAERS Safety Report 5587104-5 (Version None)
Quarter: 2008Q1

REPORT INFORMATION
  Report Type: 
  Country: None (occurrence: None)
  Receive Date: 20080110
  Receipt Date: 20071231
  Transmission Date: 20080703
  Serious: Yes (Hospitalization)
  Sender: FDA-Public Use
  Company Number: B0482732A

PATIENT
  Age: 87 Year
  Sex: Female

DRUGS (6)
  1. DEROXAT [Suspect]
     Indication: MAJOR DEPRESSION
     Dosage: 20MG PER DAY
     Route: 048
     Dates: end: 20070710
  2. MOPRAL [Suspect]
     Dosage: 20MG PER DAY
     Route: 048
     Dates: end: 20070710
  3. ROCEPHIN [Suspect]
     Indication: LUNG INFECTION
     Dosage: 2G PER DAY
     Route: 042
     Dates: start: 20070710
  4. LASIX [Suspect]
     Indication: CARDIAC FAILURE
     Dosage: 20MG PER DAY
     Route: 048
     Dates: end: 20070710
  5. DURAGESIC-100 [Concomitant]
     Indication: PAIN
     Dosage: 12.5MCG PER DAY
     Route: 062
  6. MOVICOL [Concomitant]
     Route: 048

REACTIONS (2)
  - HEMIPLEGIA [None]
  - PARTIAL SEIZURES [None]
